FAERS Safety Report 6901791-8 (Version None)
Quarter: 2010Q3

REPORT INFORMATION
  Report Type: 
  Country: None (occurrence: None)
  Receive Date: 20100803
  Receipt Date: 20080323
  Transmission Date: 20110219
  Serious: No
  Sender: FDA-Public Use
  Company Number: US-PFIZER INC-2008026829

PATIENT
  Sex: Female
  Weight: 72.7 kg

DRUGS (4)
  1. LYRICA [Suspect]
     Indication: FIBROMYALGIA
     Dates: start: 20080320
  2. THYROID TAB [Concomitant]
  3. REQUIP [Concomitant]
  4. ANTIBIOTICS [Concomitant]

REACTIONS (3)
  - ABDOMINAL PAIN [None]
  - CERVICAL SPINAL STENOSIS [None]
  - DIZZINESS [None]
